FAERS Safety Report 7755848-2 (Version None)
Quarter: 2011Q3

REPORT INFORMATION
  Report Type: 
  Country: None (occurrence: None)
  Receive Date: 20110915
  Receipt Date: 20110915
  Transmission Date: 20111222
  Serious: Yes (Hospitalization)
  Sender: FDA-Public Use
  Company Number: None

PATIENT
  Age: 47 Year
  Sex: Female
  Weight: 85.5 kg

DRUGS (6)
  1. VITAMIN D [Concomitant]
  2. AGALSIDASE ALFA (REPLAGAL - SHIRE HGT) [Suspect]
     Indication: FABRY'S DISEASE
     Dosage: 18.1 MG IV - Q 2 WEEKS
     Dates: start: 20101018, end: 20110712
  3. ZOLOFT [Concomitant]
  4. PRAVASTATIN SODIUM [Concomitant]
  5. ASPIRIN [Concomitant]
  6. MULTI-VITAMIN [Concomitant]

REACTIONS (3)
  - GAIT DISTURBANCE [None]
  - MUSCULAR WEAKNESS [None]
  - BALANCE DISORDER [None]
